FAERS Safety Report 6933686-8 (Version None)
Quarter: 2010Q3

REPORT INFORMATION
  Report Type: 
  Country: None (occurrence: None)
  Receive Date: 20100820
  Receipt Date: 20100811
  Transmission Date: 20110219
  Serious: Yes (Hospitalization)
  Sender: FDA-Public Use
  Company Number: BR-ASTRAZENECA-2010SE37981

PATIENT
  Age: 42 Year
  Sex: Male
  Weight: 45.4 kg

DRUGS (5)
  1. ATACAND [Suspect]
     Indication: HYPERTENSION
     Route: 048
     Dates: start: 20080501
  2. ATACAND [Suspect]
     Route: 048
  3. AMLODIPINE [Concomitant]
     Route: 048
     Dates: start: 20081101
  4. SELOZOK [Concomitant]
     Route: 048
     Dates: start: 20081101
  5. LIPITOR [Concomitant]
     Indication: BLOOD CHOLESTEROL
     Route: 048
     Dates: start: 20080401

REACTIONS (2)
  - CARDIAC DISORDER [None]
  - CARDIOMEGALY [None]
